FAERS Safety Report 7578682-5 (Version None)
Quarter: 2011Q2

REPORT INFORMATION
  Report Type: 
  Country: None (occurrence: None)
  Receive Date: 20110628
  Receipt Date: 20110620
  Transmission Date: 20111010
  Serious: Yes (Other)
  Sender: FDA-Public Use
  Company Number: A0932214A

PATIENT
  Sex: Male

DRUGS (2)
  1. TRUVADA [Concomitant]
  2. ARZERRA [Suspect]
     Route: 042

REACTIONS (2)
  - VIRAEMIA [None]
  - HEPATITIS B DNA DECREASED [None]
